FAERS Safety Report 5266727-7 (Version None)
Quarter: 2007Q1

REPORT INFORMATION
  Report Type: 
  Country: None (occurrence: None)
  Receive Date: 20070312
  Receipt Date: 20070222
  Transmission Date: 20070707
  Serious: Yes (Hospitalization, Other)
  Sender: FDA-Public Use
  Company Number: 2006BL005881

PATIENT
  Age: 43 Year
  Sex: Male

DRUGS (11)
  1. PREDNISOLONE SODIUM PHOSPHATE [Suspect]
     Indication: BURKITT'S LYMPHOMA
     Dosage: 6 DOSE FORM; CYCLICAL; ORAL
     Route: 048
     Dates: start: 19980401, end: 19980901
  2. SULFAMETHOXAZOLE [Suspect]
     Indication: BURKITT'S LYMPHOMA
  3. HYDROCORTISONE [Suspect]
     Indication: BURKITT'S LYMPHOMA
     Dosage: UNKNOWN; CYCLICAL; ORAL
     Route: 048
     Dates: start: 19980401, end: 19980901
  4. CYCLOPHOSPHAMIDE [Suspect]
     Indication: BURKITT'S LYMPHOMA
     Dosage: 6 DOSE FORM; CYCLICAL; ORAL
     Route: 048
     Dates: start: 19980401, end: 19980901
  5. CYTARABINE [Suspect]
     Indication: BURKITT'S LYMPHOMA
     Dosage: UNKNOWN; UNKNOWN; ORAL
     Route: 048
     Dates: start: 19980401, end: 19980901
  6. DOXORUBICIN HCL [Suspect]
     Indication: BURKITT'S LYMPHOMA
     Dosage: 6 DOSE FORM; CYCLICAL; ORAL
     Route: 048
     Dates: start: 19980401, end: 19980901
  7. METHOTREXATE [Suspect]
     Indication: BURKITT'S LYMPHOMA
     Dosage: UNKNOWN; UNKNOWN; INTRATHECAL
     Route: 037
     Dates: start: 19980401, end: 19980901
  8. RITONAVIR (RITONAVIR) [Suspect]
     Indication: RETROVIRAL INFECTION
     Dosage: 400 MILLIGRAMS; TWICE A DAY; ORAL
     Route: 048
     Dates: start: 19980401
  9. SAQUINAVIR (SAQUINAVIR) [Suspect]
     Indication: RETROVIRAL INFECTION
     Dosage: 400 MILLIGRAMS; TWICE A DAY; ORAL
     Route: 048
     Dates: start: 19980401
  10. VINCRISTINE [Suspect]
     Indication: BURKITT'S LYMPHOMA
     Dosage: 6 DOSE FORM; CYCLICAL; ORAL
     Route: 048
     Dates: start: 19980401, end: 19980901
  11. TRIMETHOPRIM [Suspect]
     Indication: PNEUMOCYSTIS JIROVECI INFECTION
     Dosage: UNKNOWN; UNKNOWN; ORAL
     Route: 048
     Dates: start: 19961001

REACTIONS (10)
  - BLOOD CHOLESTEROL INCREASED [None]
  - BLOOD HIV RNA INCREASED [None]
  - BLOOD TRIGLYCERIDES INCREASED [None]
  - CD4 LYMPHOCYTES DECREASED [None]
  - LUMBAR VERTEBRAL FRACTURE [None]
  - OSTEONECROSIS [None]
  - OSTEOPOROSIS [None]
  - REFUSAL OF TREATMENT BY PATIENT [None]
  - SPINAL COMPRESSION FRACTURE [None]
  - THORACIC VERTEBRAL FRACTURE [None]
